FAERS Safety Report 7271192-4 (Version None)
Quarter: 2011Q1

REPORT INFORMATION
  Report Type: 
  Country: None (occurrence: None)
  Receive Date: 20110202
  Receipt Date: 20110131
  Transmission Date: 20110831
  Serious: No
  Sender: FDA-Public Use
  Company Number: US-PFIZER INC-2011022514

PATIENT
  Sex: Female

DRUGS (2)
  1. LYRICA [Suspect]
     Dosage: UNK, 2X/DAY
  2. LYRICA [Suspect]
     Dosage: UNK, 1X/DAY

REACTIONS (5)
  - JOINT SWELLING [None]
  - DECREASED APPETITE [None]
  - NAUSEA [None]
  - HYPERSOMNIA [None]
  - DIARRHOEA [None]
